FAERS Safety Report 25970818 (Version 1)
Quarter: 2025Q4

REPORT INFORMATION
  Report Type: Spontaneous
  Country: US (occurrence: None)
  Receive Date: 20251028
  Receipt Date: 20251028
  Transmission Date: 20260118
  Serious: No
  Sender: FDA-CTU
  Company Number: None

PATIENT
  Age: 39 Year
  Sex: Male
  Weight: 91.35 kg

DRUGS (2)
  1. SUBLOCADE [Suspect]
     Active Substance: BUPRENORPHINE
     Indication: Drug use disorder
     Dosage: OTHER FREQUENCY : Q28 DAYS;?
     Route: 058
     Dates: start: 20231201, end: 20251007
  2. Lidocaine 1% intradermal injection [Concomitant]
     Dates: start: 20250513, end: 20251007

REACTIONS (4)
  - Injection site discharge [None]
  - Injection site atrophy [None]
  - Necrotising soft tissue infection [None]
  - Skin lesion [None]

NARRATIVE: CASE EVENT DATE: 20251007
